FAERS Safety Report 26055396 (Version 1)
Quarter: 2025Q4

REPORT INFORMATION
  Report Type: Spontaneous
  Country: US (occurrence: US)
  Receive Date: 20251117
  Receipt Date: 20251117
  Transmission Date: 20260118
  Serious: Yes (Other)
  Sender: NOVO NORDISK
  Company Number: US-NOVOPROD-1562547

PATIENT
  Sex: Male

DRUGS (3)
  1. NOVOLOG [Suspect]
     Active Substance: INSULIN ASPART
     Indication: Type 1 diabetes mellitus
     Dosage: UNK
     Route: 058
  2. NOVOLOG [Suspect]
     Active Substance: INSULIN ASPART
     Indication: Type 1 diabetes mellitus
     Dosage: UNK
     Route: 058
  3. HUMALOG [Concomitant]
     Active Substance: INSULIN LISPRO
     Indication: Type 1 diabetes mellitus
     Dosage: 75 - 100 UNITS
     Route: 058

REACTIONS (8)
  - Bipolar disorder [Recovering/Resolving]
  - Suicide attempt [Recovering/Resolving]
  - Substance abuse [Recovering/Resolving]
  - Borderline personality disorder [Recovering/Resolving]
  - Generalised anxiety disorder [Recovering/Resolving]
  - Insomnia [Recovering/Resolving]
  - Post-traumatic stress disorder [Recovering/Resolving]
  - Blood glucose decreased [Unknown]
